FAERS Safety Report 15913971 (Version 1)
Quarter: 2019Q1

REPORT INFORMATION
  Report Type: Spontaneous
  Country: US (occurrence: US)
  Receive Date: 20190204
  Receipt Date: 20190204
  Transmission Date: 20190417
  Serious: Yes (Death)
  Sender: FDA-Public Use
  Company Number: None

PATIENT
  Sex: Male
  Weight: 63.45 kg

DRUGS (1)
  1. CARDVEDILOL [Suspect]
     Active Substance: CARVEDILOL
     Indication: CARDIAC FAILURE CHRONIC
     Dosage: ?          QUANTITY:1 TABLET(S);?
     Route: 048
     Dates: start: 20080701, end: 20181101

REACTIONS (6)
  - Hyperhidrosis [None]
  - Product substitution issue [None]
  - Asthenia [None]
  - Oral disorder [None]
  - Cold sweat [None]
  - Manufacturing materials issue [None]

NARRATIVE: CASE EVENT DATE: 20181031
